FAERS Safety Report 7901224-9 (Version None)
Quarter: 2011Q4

REPORT INFORMATION
  Report Type: 
  Country: None (occurrence: None)
  Receive Date: 20111108
  Receipt Date: 20111027
  Transmission Date: 20120403
  Serious: Yes (Hospitalization)
  Sender: FDA-Public Use
  Company Number: PHHY2011HU96010

PATIENT
  Age: 32 Year
  Sex: Female

DRUGS (1)
  1. CARBAMAZEPINE [Suspect]
     Indication: EPILEPSY

REACTIONS (10)
  - MUSCLE SPASMS [None]
  - NORMAL NEWBORN [None]
  - OSTEOPOROSIS [None]
  - MATERNAL EXPOSURE DURING PREGNANCY [None]
  - OSTEONECROSIS [None]
  - PREMATURE DELIVERY [None]
  - OSTEOPENIA [None]
  - ARTHRALGIA [None]
  - EPIPHYSIOLYSIS [None]
  - EPILEPSY [None]
